FAERS Safety Report 9211105 (Version 2)
Quarter: 2013Q2

REPORT INFORMATION
  Report Type: Spontaneous
  Country: US (occurrence: US)
  Receive Date: 20130404
  Receipt Date: 20130510
  Transmission Date: 20140414
  Serious: Yes (Hospitalization)
  Sender: FDA-Public Use
  Company Number: US-GILEAD-2013-0072783

PATIENT
  Age: 52 Year
  Sex: Female

DRUGS (1)
  1. LETAIRIS [Suspect]
     Indication: PULMONARY ARTERIAL HYPERTENSION
     Dosage: 10 MG, UNK
     Route: 048
     Dates: start: 20120410

REACTIONS (4)
  - Pancreatitis [Unknown]
  - Transfusion [Unknown]
  - Bile duct obstruction [Unknown]
  - Gastric polyps [Unknown]
